FAERS Safety Report 5816939-6 (Version None)
Quarter: 2008Q3

REPORT INFORMATION
  Report Type: 
  Country: None (occurrence: None)
  Receive Date: 20080722
  Receipt Date: 20080714
  Transmission Date: 20090109
  Serious: Yes (Other)
  Sender: FDA-Public Use
  Company Number: PHBS2008DK02944

PATIENT
  Sex: Female

DRUGS (5)
  1. DIOVAN COMP [Suspect]
     Indication: HYPERTENSION
     Dosage: VALS 160 / HCT 25 MG/DAY
     Route: 048
     Dates: start: 20080304
  2. DIOVAN COMP [Suspect]
     Dosage: VALS 320 MG / HCT 50 MG/DAY
     Route: 048
  3. DIOVAN COMP [Suspect]
     Dosage: VALS 160 / HCT 25 MG/DAY
     Route: 048
     Dates: end: 20080220
  4. DOLOL [Concomitant]
     Indication: BACK PAIN
     Dosage: ONE TABLET AS NEEDED
     Dates: start: 20061009
  5. MODIFENAC [Concomitant]
     Indication: BACK PAIN
     Dosage: 75 MG, ONE TABLET, BID
     Dates: start: 20060324

REACTIONS (3)
  - BLOOD PRESSURE INCREASED [None]
  - DIARRHOEA [None]
  - HAEMATOCHEZIA [None]
